FAERS Safety Report 6248314-7 (Version None)
Quarter: 2009Q2

REPORT INFORMATION
  Report Type: 
  Country: None (occurrence: None)
  Receive Date: 20090629
  Receipt Date: 20090617
  Transmission Date: 20091009
  Serious: Yes (Hospitalization)
  Sender: FDA-Public Use
  Company Number: PHHY2009BR24554

PATIENT
  Sex: Male

DRUGS (2)
  1. EXFORGE [Suspect]
     Indication: HYPERTENSION
     Dosage: 160/5/DAY
     Route: 048
     Dates: start: 20090501
  2. EXFORGE [Suspect]
     Dosage: 160/5 BID
     Route: 048

REACTIONS (1)
  - BLOOD PRESSURE INCREASED [None]
